FAERS Safety Report 20225604 (Version 1)
Quarter: 2021Q4

REPORT INFORMATION
  Report Type: Spontaneous
  Country: FR (occurrence: FR)
  Receive Date: 20211224
  Receipt Date: 20211224
  Transmission Date: 20220303
  Serious: Yes (Disabling)
  Sender: FDA-Public Use
  Company Number: FR-ABBVIE-21K-056-4208202-00

PATIENT
  Age: 2 Year
  Sex: Male
  Weight: 12.6 kg

DRUGS (1)
  1. VALPROATE SODIUM [Suspect]
     Active Substance: VALPROATE SODIUM
     Indication: Epilepsy
     Route: 048
     Dates: start: 201609, end: 2017

REACTIONS (2)
  - Behaviour disorder [Recovering/Resolving]
  - Speech disorder developmental [Recovering/Resolving]

NARRATIVE: CASE EVENT DATE: 20170101
